FAERS Safety Report 9364506 (Version 2)
Quarter: 2013Q3

REPORT INFORMATION
  Report Type: Spontaneous
  Country: KZ (occurrence: KZ)
  Receive Date: 20130624
  Receipt Date: 20130717
  Transmission Date: 20140515
  Serious: Yes (Other)
  Sender: FDA-Public Use
  Company Number: KZ-GLAXOSMITHKLINE-B0896609A

PATIENT
  Age: 18 Year
  Sex: Female
  Weight: 59 kg

DRUGS (5)
  1. BENLYSTA [Suspect]
     Indication: SYSTEMIC LUPUS ERYTHEMATOSUS
     Dosage: 590MG PER DAY
     Route: 065
     Dates: start: 20130320, end: 20130524
  2. PARACETAMOL [Suspect]
     Indication: PREMEDICATION
     Dosage: .5G PER DAY
     Route: 065
     Dates: start: 20130524, end: 20130524
  3. SUPRASTIN [Suspect]
     Indication: PREMEDICATION
     Dosage: 1ML PER DAY
     Route: 065
     Dates: start: 20130524, end: 20130524
  4. METYPRED [Concomitant]
     Indication: SYSTEMIC LUPUS ERYTHEMATOSUS
     Dosage: 12MG PER DAY
     Dates: start: 201212
  5. CELL CEPT [Concomitant]
     Indication: SYSTEMIC LUPUS ERYTHEMATOSUS
     Dates: start: 201212

REACTIONS (13)
  - Bone pain [Recovered/Resolved]
  - Myalgia [Recovered/Resolved]
  - Chills [Recovered/Resolved]
  - Asthenia [Recovered/Resolved]
  - Arthralgia [Recovered/Resolved]
  - General physical health deterioration [Unknown]
  - Pallor [Unknown]
  - Peripheral coldness [Unknown]
  - Cushingoid [Unknown]
  - Arthritis [Unknown]
  - Hypothermia [Unknown]
  - Joint stiffness [Unknown]
  - Ventricular hypertrophy [Unknown]
